FAERS Safety Report 24217614 (Version 1)
Quarter: 2024Q3

REPORT INFORMATION
  Report Type: Spontaneous
  Country: US (occurrence: None)
  Receive Date: 20240815
  Receipt Date: 20240815
  Transmission Date: 20241017
  Serious: Yes (Death)
  Sender: Public
  Company Number: None

PATIENT
  Age: 52 Year
  Sex: Male
  Weight: 90.5 kg

DRUGS (1)
  1. MIRCERA [Suspect]
     Active Substance: METHOXY POLYETHYLENE GLYCOL-EPOETIN BETA
     Indication: Nephrogenic anaemia
     Dosage: OTHER FREQUENCY : ONCE;?
     Route: 040
     Dates: start: 20240706

REACTIONS (6)
  - Agonal respiration [None]
  - Ventricular tachycardia [None]
  - Pulseless electrical activity [None]
  - Acute myocardial infarction [None]
  - Cardiogenic shock [None]
  - Brain injury [None]

NARRATIVE: CASE EVENT DATE: 20240723
